FAERS Safety Report 23406074 (Version 1)
Quarter: 2024Q1

REPORT INFORMATION
  Report Type: Spontaneous
  Country: US (occurrence: None)
  Receive Date: 20240114
  Receipt Date: 20240114
  Transmission Date: 20240410
  Serious: Yes (Hospitalization, Other)
  Sender: FDA-Public Use
  Company Number: None

PATIENT
  Age: 77 Year
  Sex: Male
  Weight: 81 kg

DRUGS (1)
  1. XGEVA [Suspect]
     Active Substance: DENOSUMAB
     Indication: Lung cancer metastatic
     Route: 058
     Dates: start: 20231203, end: 20240103

REACTIONS (5)
  - Fatigue [None]
  - Asthenia [None]
  - Decreased appetite [None]
  - Weight decreased [None]
  - Hypersomnia [None]

NARRATIVE: CASE EVENT DATE: 20240103
